FAERS Safety Report 22116950 (Version 1)
Quarter: 2023Q1

REPORT INFORMATION
  Report Type: Spontaneous
  Country: US (occurrence: US)
  Receive Date: 20230320
  Receipt Date: 20230320
  Transmission Date: 20230418
  Serious: Yes (Hospitalization, Other)
  Sender: FDA-Public Use
  Company Number: US-MYLANLABS-2023M1027299

PATIENT
  Sex: Female

DRUGS (1)
  1. WIXELA INHUB [Suspect]
     Active Substance: FLUTICASONE PROPIONATE\SALMETEROL XINAFOATE
     Indication: Asthma
     Dosage: 100 MICROGRAM, START DATE:19-FEB-2020
     Route: 055

REACTIONS (7)
  - Atrial fibrillation [Recovered/Resolved]
  - Oropharyngeal discomfort [Unknown]
  - Insomnia [Unknown]
  - Dehydration [Unknown]
  - Anxiety [Unknown]
  - Condition aggravated [Unknown]
  - Headache [Unknown]

NARRATIVE: CASE EVENT DATE: 20200201
